FAERS Safety Report 6816566-8 (Version None)
Quarter: 2010Q3

REPORT INFORMATION
  Report Type: 
  Country: None (occurrence: None)
  Receive Date: 20100706
  Receipt Date: 20100625
  Transmission Date: 20110219
  Serious: Yes (Hospitalization)
  Sender: FDA-Public Use
  Company Number: US-ELI_LILLY_AND_COMPANY-US201005001739

PATIENT
  Sex: Male
  Weight: 109.75 kg

DRUGS (17)
  1. BYETTA [Suspect]
     Indication: TYPE 2 DIABETES MELLITUS
     Dosage: 5 UG, 2/D
     Route: 058
     Dates: start: 20090306, end: 20090323
  2. BYETTA [Suspect]
     Dosage: 10 UG, 2/D
     Route: 058
     Dates: start: 20090323, end: 20100101
  3. BYETTA [Suspect]
     Dosage: UNK, 2/D
     Route: 058
     Dates: start: 20100116, end: 20100319
  4. LANTUS [Concomitant]
     Dosage: 50 U, EACH MORNING
  5. LANTUS [Concomitant]
     Dosage: 60 U, EACH EVENING
  6. METFORMIN HCL [Concomitant]
     Dosage: 1000 MG, 2/D
  7. GLIPIZIDE [Concomitant]
     Indication: TYPE 2 DIABETES MELLITUS
     Dosage: 10 MG, 2/D
  8. ASPIRIN [Concomitant]
     Dosage: 81 MG, DAILY (1/D)
  9. ZYRTEC [Concomitant]
     Dosage: 10 MG, DAILY (1/D)
  10. PROAIR HFA [Concomitant]
  11. SALEX [Concomitant]
  12. SALEX [Concomitant]
  13. KETOCONAZOLE [Concomitant]
     Indication: PSORIASIS
  14. KETOCONAZOLE [Concomitant]
  15. CLOBETASOL                         /00337102/ [Concomitant]
     Indication: PSORIASIS
  16. DOVONEX [Concomitant]
     Indication: PSORIASIS
  17. TRIAMCINOLONE [Concomitant]

REACTIONS (2)
  - PANCREATITIS [None]
  - WEIGHT DECREASED [None]
